FAERS Safety Report 11315981 (Version 1)
Quarter: 2015Q3

REPORT INFORMATION
  Report Type: Spontaneous
  Country: US (occurrence: US)
  Receive Date: 20150728
  Receipt Date: 20150728
  Transmission Date: 20151125
  Serious: No
  Sender: FDA-Public Use
  Company Number: US-BAYER-2015-380252

PATIENT
  Age: 47 Year
  Sex: Male

DRUGS (1)
  1. GADAVIST [Suspect]
     Active Substance: GADOBUTROL
     Indication: ABDOMEN SCAN
     Dosage: 10 ML, UNK
     Route: 042
     Dates: start: 20150715, end: 20150715

REACTIONS (4)
  - Product use issue [None]
  - Sensation of foreign body [Recovered/Resolved]
  - Nasal congestion [Recovered/Resolved]
  - Sneezing [Recovered/Resolved]

NARRATIVE: CASE EVENT DATE: 20150715
